FAERS Safety Report 7738043-2 (Version None)
Quarter: 2011Q3

REPORT INFORMATION
  Report Type: 
  Country: None (occurrence: None)
  Receive Date: 20110908
  Receipt Date: 20110901
  Transmission Date: 20111222
  Serious: Yes (Other)
  Sender: FDA-Public Use
  Company Number: US-AMGEN-USASP2011041694

PATIENT
  Sex: Female

DRUGS (3)
  1. NPLATE [Suspect]
     Indication: THROMBOCYTOPENIC PURPURA
     Dates: start: 20091001
  2. TOPAMAX [Concomitant]
  3. ENALAPRIL MALEATE [Concomitant]

REACTIONS (1)
  - ECTOPIC PREGNANCY [None]
